FAERS Safety Report 21368084 (Version 1)
Quarter: 2022Q3

REPORT INFORMATION
  Report Type: Spontaneous
  Country: US (occurrence: US)
  Receive Date: 20220923
  Receipt Date: 20220923
  Transmission Date: 20221027
  Serious: No
  Sender: FDA-Public Use
  Company Number: US-SANOFI-01284753

PATIENT
  Age: 63 Year
  Sex: Male

DRUGS (2)
  1. ELITEK [Suspect]
     Active Substance: RASBURICASE
     Indication: Renal tubular necrosis
     Dosage: UNK
  2. KEVZARA [Concomitant]
     Active Substance: SARILUMAB
     Dosage: UNK

REACTIONS (1)
  - Product use in unapproved indication [Unknown]
